FAERS Safety Report 11642151 (Version 1)
Quarter: 2015Q4

REPORT INFORMATION
  Report Type: Spontaneous
  Country: PT (occurrence: PT)
  Receive Date: 20151019
  Receipt Date: 20151019
  Transmission Date: 20160304
  Serious: Yes (Hospitalization)
  Sender: FDA-Public Use
  Company Number: PHHY2015PT124640

PATIENT
  Age: 19 Year
  Sex: Female

DRUGS (5)
  1. PENTOXIFYLLINE. [Suspect]
     Active Substance: PENTOXIFYLLINE
     Indication: EMBOLIA CUTIS MEDICAMENTOSA
     Dosage: 200 MG, TID
     Route: 042
  2. MEROPENEM. [Suspect]
     Active Substance: MEROPENEM
     Indication: EMBOLIA CUTIS MEDICAMENTOSA
     Dosage: 100 MG, TID
     Route: 065
  3. PREDNISOLONE. [Suspect]
     Active Substance: PREDNISOLONE
     Indication: EMBOLIA CUTIS MEDICAMENTOSA
     Dosage: 50 MG, TID
     Route: 065
  4. ENOXAPARIN [Suspect]
     Active Substance: ENOXAPARIN
     Indication: EMBOLIA CUTIS MEDICAMENTOSA
     Dosage: 40 MG, BID
     Route: 058
  5. ALPROSTADIL. [Suspect]
     Active Substance: ALPROSTADIL
     Indication: EMBOLIA CUTIS MEDICAMENTOSA
     Dosage: 68 UG
     Route: 065

REACTIONS (2)
  - Pain [Unknown]
  - Oedema [Unknown]
